FAERS Safety Report 16627257 (Version 2)
Quarter: 2019Q3

REPORT INFORMATION
  Report Type: Spontaneous
  Country: IT (occurrence: IT)
  Receive Date: 20190724
  Receipt Date: 20190821
  Transmission Date: 20191004
  Serious: Yes (Death)
  Sender: FDA-Public Use
  Company Number: PHHY2019IT171462

PATIENT
  Age: 46 Year
  Sex: Male

DRUGS (5)
  1. VARGATEF [Suspect]
     Active Substance: NINTEDANIB
     Dosage: UNK
     Route: 065
  2. VARGATEF [Suspect]
     Active Substance: NINTEDANIB
     Indication: CHEMOTHERAPY
     Dosage: 400 MG, QD
     Route: 065
     Dates: start: 20151221
  3. VARGATEF [Suspect]
     Active Substance: NINTEDANIB
     Dosage: 2 OT, QD
     Route: 065
     Dates: start: 20160414
  4. VARGATEF [Suspect]
     Active Substance: NINTEDANIB
     Dosage: 400 MG, QD
     Route: 065
     Dates: start: 20160115, end: 20160226
  5. DOCETAXEL. [Suspect]
     Active Substance: DOCETAXEL
     Indication: CHEMOTHERAPY
     Dosage: 75 MG, UNK (STRENGTH - 75 MG/MQ)
     Route: 065

REACTIONS (5)
  - Gastrointestinal toxicity [Recovered/Resolved]
  - Haematotoxicity [Recovered/Resolved]
  - Lung neoplasm malignant [Fatal]
  - Neurotoxicity [Not Recovered/Not Resolved]
  - Gastrointestinal toxicity [Recovered/Resolved]

NARRATIVE: CASE EVENT DATE: 201601
